FAERS Safety Report 7246751-5 (Version None)
Quarter: 2011Q1

REPORT INFORMATION
  Report Type: 
  Country: None (occurrence: None)
  Receive Date: 20110127
  Receipt Date: 20110118
  Transmission Date: 20110831
  Serious: Yes (Hospitalization, Other)
  Sender: FDA-Public Use
  Company Number: FR-JNJFOC-20110104696

PATIENT
  Age: 76 Year
  Sex: Male

DRUGS (5)
  1. CLAFORAN [Concomitant]
  2. HYPNOTICS AND SEDATIVES [Concomitant]
     Route: 065
  3. TAVANIC [Suspect]
     Route: 048
  4. CATECHOLAMINES NOS [Concomitant]
     Route: 065
  5. TAVANIC [Suspect]
     Indication: LUNG DISORDER
     Route: 048

REACTIONS (2)
  - CYTOLYTIC HEPATITIS [None]
  - INCORRECT DOSE ADMINISTERED [None]
